FAERS Safety Report 5643986-X (Version None)
Quarter: 2008Q1

REPORT INFORMATION
  Report Type: 
  Country: None (occurrence: None)
  Receive Date: 20080131
  Receipt Date: 20070315
  Transmission Date: 20080703
  Serious: Yes (Hospitalization)
  Sender: FDA-Public Use
  Company Number: ACO_0327_2007

PATIENT

DRUGS (1)
  1. ZANAFLEX [Suspect]

REACTIONS (1)
  - HYPOTENSION [None]
